FAERS Safety Report 11381837 (Version 6)
Quarter: 2016Q3

REPORT INFORMATION
  Report Type: Report from Study
  Country: PL (occurrence: PL)
  Receive Date: 20150814
  Receipt Date: 20160805
  Transmission Date: 20161109
  Serious: Yes (Death)
  Sender: FDA-Public Use
  Company Number: PL-EISAI MEDICAL RESEARCH-EC-2015-009568

PATIENT
  Age: 66 Year
  Sex: Male
  Weight: 86.2 kg

DRUGS (7)
  1. OLIOCARD [Concomitant]
     Route: 048
     Dates: start: 2013
  2. APOTRIMET [Concomitant]
     Route: 048
     Dates: start: 2013
  3. NEBINAD [Concomitant]
     Route: 048
     Dates: start: 2013
  4. CLATRA [Concomitant]
     Route: 048
     Dates: start: 2013
  5. ROSUCARD [Concomitant]
     Active Substance: ROSUVASTATIN CALCIUM
     Route: 048
     Dates: start: 2013
  6. LORCASERIN [Suspect]
     Active Substance: LORCASERIN HYDROCHLORIDE
     Indication: WEIGHT CONTROL
     Route: 048
     Dates: start: 20150320, end: 20150611
  7. LORCASERIN [Suspect]
     Active Substance: LORCASERIN HYDROCHLORIDE
     Route: 048
     Dates: start: 20150701, end: 20150801

REACTIONS (1)
  - Cardio-respiratory arrest [Fatal]

NARRATIVE: CASE EVENT DATE: 20150802
